FAERS Safety Report 9236542 (Version 1)
Quarter: 2013Q2

REPORT INFORMATION
  Report Type: Spontaneous
  Country: US (occurrence: US)
  Receive Date: 20130417
  Receipt Date: 20130417
  Transmission Date: 20140414
  Serious: Yes (Other)
  Sender: FDA-Public Use
  Company Number: US-PFIZER INC-2012295147

PATIENT
  Age: 82 Year
  Sex: Female
  Weight: 92.06 kg

DRUGS (11)
  1. LYRICA [Suspect]
     Indication: NEURALGIA
     Dosage: 75 MG, 1X/DAY
     Route: 048
  2. HYDROCHLOROTHIAZIDE [Concomitant]
     Dosage: UNK
  3. HYDROCODONE [Concomitant]
     Indication: BACK PAIN
     Dosage: 7.5 MG, 1X/DAY
  4. ATENOLOL [Concomitant]
     Indication: BLOOD PRESSURE ABNORMAL
     Dosage: 25 MG, 2X/DAY
  5. MOBIC [Concomitant]
     Indication: BLOOD PRESSURE ABNORMAL
     Dosage: 4 MG, UNK
  6. LEVOXYL [Concomitant]
     Indication: THYROID DISORDER
     Dosage: UNK
  7. VIACTIV CHEW [Concomitant]
     Dosage: 1 DF, 2X/DAY
  8. CENTRUM SILVER CHEW [Concomitant]
     Dosage: UNK, 1X/DAY
  9. SYNTHROID [Concomitant]
     Dosage: 25 UG, 1X/DAY
  10. ADVIL [Concomitant]
     Dosage: UNK
  11. SOMA [Concomitant]
     Dosage: 350 MG, 3X/DAY

REACTIONS (3)
  - Macular degeneration [Unknown]
  - Blood triglycerides decreased [Unknown]
  - Blood pressure increased [Unknown]
